FAERS Safety Report 15458500 (Version 1)
Quarter: 2018Q4

REPORT INFORMATION
  Report Type: Spontaneous
  Country: US (occurrence: US)
  Receive Date: 20181003
  Receipt Date: 20181003
  Transmission Date: 20190204
  Serious: No
  Sender: FDA-Public Use
  Company Number: PHEH2018US040389

PATIENT
  Sex: Female

DRUGS (2)
  1. AZOPT [Suspect]
     Active Substance: BRINZOLAMIDE
     Indication: EYELID RASH
     Dosage: 1 UNK, QD
     Route: 047
  2. VITAMIN D [Concomitant]
     Active Substance: CHOLECALCIFEROL
     Indication: PRODUCT USED FOR UNKNOWN INDICATION
     Route: 065

REACTIONS (1)
  - Rash [Unknown]
